FAERS Safety Report 11981601 (Version 3)
Quarter: 2016Q1

REPORT INFORMATION
  Report Type: Spontaneous
  Country: GB (occurrence: GB)
  Receive Date: 20160131
  Receipt Date: 20160303
  Transmission Date: 20160526
  Serious: Yes (Other)
  Sender: FDA-Public Use
  Company Number: GB-AMGEN-GBRSP2016008739

PATIENT
  Sex: Female

DRUGS (1)
  1. NPLATE [Suspect]
     Active Substance: ROMIPLOSTIM
     Indication: PRODUCT USED FOR UNKNOWN INDICATION
     Dosage: 2 MUG/KG, UNK
     Route: 065

REACTIONS (3)
  - Cholestasis of pregnancy [Unknown]
  - Alanine aminotransferase increased [Not Recovered/Not Resolved]
  - Maternal exposure during pregnancy [Unknown]
